FAERS Safety Report 16163747 (Version 1)
Quarter: 2019Q2

REPORT INFORMATION
  Report Type: Spontaneous
  Country: US (occurrence: US)
  Receive Date: 20190405
  Receipt Date: 20190405
  Transmission Date: 20190711
  Serious: Yes (Other)
  Sender: FDA-Public Use
  Company Number: US-AMGEN-USASP2019051079

PATIENT
  Sex: Female

DRUGS (1)
  1. BLINCYTO [Suspect]
     Active Substance: BLINATUMOMAB
     Indication: ACUTE LYMPHOCYTIC LEUKAEMIA RECURRENT
     Dosage: 9 MICROGRAM, QD
     Route: 042
     Dates: start: 20190319, end: 20190329

REACTIONS (6)
  - Drug intolerance [Unknown]
  - Tachycardia [Unknown]
  - Anaemia [Unknown]
  - Troponin increased [Unknown]
  - Thrombosis in device [Unknown]
  - Pyrexia [Unknown]

NARRATIVE: CASE EVENT DATE: 201903
